FAERS Safety Report 23896016 (Version 1)
Quarter: 2024Q2

REPORT INFORMATION
  Report Type: Spontaneous
  Country: US (occurrence: None)
  Receive Date: 20240523
  Receipt Date: 20240523
  Transmission Date: 20240716
  Serious: No
  Sender: FDA-Public Use
  Company Number: None

PATIENT
  Age: 12 Year

DRUGS (1)
  1. DEPAKENE [Suspect]
     Active Substance: VALPROIC ACID

REACTIONS (3)
  - Incorrect dose administered [None]
  - Irritability [None]
  - Musculoskeletal stiffness [None]
